FAERS Safety Report 9362012 (Version 2)
Quarter: 2013Q3

REPORT INFORMATION
  Report Type: Spontaneous
  Country: US (occurrence: US)
  Receive Date: 20130621
  Receipt Date: 20130718
  Transmission Date: 20140515
  Serious: Yes (Other)
  Sender: FDA-Public Use
  Company Number: US-PFIZER INC-2013187154

PATIENT
  Age: 26 Year
  Sex: Male
  Weight: 97 kg

DRUGS (3)
  1. CHANTIX [Suspect]
     Indication: SMOKING CESSATION THERAPY
     Dosage: 0.5 MG, 1X/DAY
     Dates: start: 201306, end: 201306
  2. CHANTIX [Suspect]
     Dosage: 0.5 MG, 2X/DAY
     Dates: start: 201306, end: 201306
  3. CHANTIX [Suspect]
     Dosage: 1 MG, 2X/DAY
     Dates: start: 201306, end: 20130619

REACTIONS (4)
  - Agitation [Recovering/Resolving]
  - Homicidal ideation [Recovering/Resolving]
  - Violence-related symptom [Recovering/Resolving]
  - Anger [Recovering/Resolving]
